FAERS Safety Report 5418633-2 (Version None)
Quarter: 2007Q3

REPORT INFORMATION
  Report Type: 
  Country: None (occurrence: None)
  Receive Date: 20070817
  Receipt Date: 20070807
  Transmission Date: 20080115
  Serious: Yes (Hospitalization, Other)
  Sender: FDA-Public Use
  Company Number: FR-ABBOTT-07P-056-0377529-00

PATIENT
  Sex: Male
  Weight: 50 kg

DRUGS (13)
  1. KALETRA [Suspect]
     Indication: VIRAL INFECTION
     Route: 048
     Dates: end: 20070621
  2. LAMIVUDINE [Suspect]
     Indication: VIRAL INFECTION
     Route: 048
     Dates: end: 20070621
  3. FOSAMPRENAVIR [Suspect]
     Indication: VIRAL INFECTION
     Route: 048
     Dates: end: 20070621
  4. CEFOTAXIME SODIUM [Suspect]
     Indication: LUNG DISORDER
     Route: 042
     Dates: start: 20070610, end: 20070620
  5. INSULINE [Concomitant]
     Indication: DIABETES MELLITUS
  6. RAMIPRIL [Concomitant]
     Indication: DRUG USE FOR UNKNOWN INDICATION
  7. FUROSEMIDE [Concomitant]
     Indication: DRUG USE FOR UNKNOWN INDICATION
  8. ATENOLOL [Concomitant]
     Indication: DRUG USE FOR UNKNOWN INDICATION
  9. URAPIDIL [Concomitant]
     Indication: DRUG USE FOR UNKNOWN INDICATION
  10. NICARDIPINE HYDROCHLORIDE [Concomitant]
     Indication: DRUG USE FOR UNKNOWN INDICATION
  11. ESOMEPRAZOLE MAGNESIUM [Concomitant]
     Indication: DRUG USE FOR UNKNOWN INDICATION
  12. POLYSTYRENE SULFONATE SODIUM [Concomitant]
     Indication: DRUG USE FOR UNKNOWN INDICATION
  13. HEPARINE CALCIC [Concomitant]
     Indication: DRUG USE FOR UNKNOWN INDICATION

REACTIONS (4)
  - CHOLELITHIASIS [None]
  - PANCREATITIS ACUTE [None]
  - PNEUMONIA PNEUMOCOCCAL [None]
  - PULMONARY OEDEMA [None]
